FAERS Safety Report 10335881 (Version 1)
Quarter: 2014Q3

REPORT INFORMATION
  Report Type: Spontaneous
  Country: US (occurrence: US)
  Receive Date: 20140723
  Receipt Date: 20140723
  Transmission Date: 20150326
  Serious: No
  Sender: FDA-Public Use
  Company Number: US-BRISTOL-MYERS SQUIBB COMPANY-19190560

PATIENT
  Age: 81 Year
  Sex: Female
  Weight: 61.22 kg

DRUGS (1)
  1. WARFARIN SODIUM. [Suspect]
     Active Substance: WARFARIN SODIUM
     Dosage: 5MG SEVERAL DAYS A WK, THEN 2.5MG

REACTIONS (1)
  - Alopecia [Unknown]
